FAERS Safety Report 5050719-7 (Version None)
Quarter: 2006Q3

REPORT INFORMATION
  Report Type: 
  Country: None (occurrence: None)
  Receive Date: 20060713
  Receipt Date: 20060704
  Transmission Date: 20061208
  Serious: Yes (Hospitalization)
  Sender: FDA-Public Use
  Company Number: FR-BRISTOL-MYERS SQUIBB COMPANY-13434352

PATIENT
  Age: 50 Year
  Sex: Male

DRUGS (3)
  1. AMIKIN [Suspect]
     Dosage: DRUG WITHDRAWN ON AN UPSPECIFIED DATE.
     Route: 042
     Dates: start: 20060331
  2. TARGOCID [Suspect]
     Indication: BACK PAIN
     Dosage: DRUG WITHDRAWN ON AN UPSPECIFIED DATE.
     Dates: start: 20060331
  3. COLCHICINE [Concomitant]
     Indication: GOUT
     Dates: start: 20060404, end: 20060407

REACTIONS (1)
  - NEUTROPENIA [None]
